FAERS Safety Report 4957856-3 (Version None)
Quarter: 2006Q1

REPORT INFORMATION
  Report Type: 
  Country: None (occurrence: None)
  Receive Date: 20060330
  Receipt Date: 20060321
  Transmission Date: 20060701
  Serious: Yes (Hospitalization)
  Sender: FDA-Public Use
  Company Number: 2006PK00571

PATIENT
  Age: 45 Year
  Sex: Female

DRUGS (7)
  1. SEROQUEL [Suspect]
     Dosage: 600 TO 900 MG
     Route: 048
     Dates: start: 20031001, end: 20050620
  2. SEROQUEL [Suspect]
     Route: 048
     Dates: start: 20050621, end: 20050712
  3. SEROQUEL [Suspect]
     Route: 048
     Dates: start: 20050713, end: 20050720
  4. SOLIAN [Suspect]
     Route: 048
     Dates: start: 20050714, end: 20050722
  5. SOLIAN [Suspect]
     Route: 048
     Dates: start: 20050723, end: 20050723
  6. SOLIAN [Suspect]
     Route: 048
     Dates: start: 20050724, end: 20050724
  7. TAVOR [Concomitant]
     Route: 048
     Dates: start: 20050715, end: 20050720

REACTIONS (3)
  - BREAST DISCOMFORT [None]
  - DRUG INEFFECTIVE [None]
  - GALACTORRHOEA [None]
